FAERS Safety Report 25274054 (Version 1)
Quarter: 2025Q2

REPORT INFORMATION
  Report Type: Spontaneous
  Country: US (occurrence: None)
  Receive Date: 20250506
  Receipt Date: 20250506
  Transmission Date: 20250717
  Serious: Yes (unspecified)
  Sender: FDA-CTU
  Company Number: None

PATIENT
  Age: 60 Year
  Sex: Female

DRUGS (3)
  1. CLINDAMYCIN [Suspect]
     Active Substance: CLINDAMYCIN
     Indication: Tooth infection
     Dates: start: 20250305, end: 20250313
  2. Vancomycin FOR C-DIFF infection, ACTIVE [Concomitant]
  3. PEPCID [Concomitant]
     Active Substance: FAMOTIDINE

REACTIONS (2)
  - Clostridium difficile infection [None]
  - Constipation [None]

NARRATIVE: CASE EVENT DATE: 20250403
